FAERS Safety Report 7933004-2 (Version None)
Quarter: 2011Q4

REPORT INFORMATION
  Report Type: 
  Country: None (occurrence: None)
  Receive Date: 20111122
  Receipt Date: 20111117
  Transmission Date: 20120403
  Serious: Yes (Hospitalization)
  Sender: FDA-Public Use
  Company Number: US-AMGEN-USASP2011060603

PATIENT
  Age: 62 Year
  Sex: Female
  Weight: 111.1 kg

DRUGS (3)
  1. NPLATE [Suspect]
     Indication: IDIOPATHIC THROMBOCYTOPENIC PURPURA
     Dosage: 600 MUG, QWK
     Dates: start: 20110708
  2. DIAZEPAM [Concomitant]
  3. LASIX [Concomitant]

REACTIONS (1)
  - THROMBOSIS [None]
